FAERS Safety Report 10709649 (Version 1)
Quarter: 2015Q1

REPORT INFORMATION
  Report Type: Spontaneous
  Country: TR (occurrence: TR)
  Receive Date: 20150114
  Receipt Date: 20150114
  Transmission Date: 20150721
  Serious: Yes (Congenital Anomaly, Other)
  Sender: FDA-Public Use
  Company Number: PHHY2015TR002385

PATIENT
  Age: 14 Day
  Sex: Male

DRUGS (1)
  1. TEGRETOL [Suspect]
     Active Substance: CARBAMAZEPINE
     Indication: PRODUCT USED FOR UNKNOWN INDICATION
     Dosage: UNK
     Route: 064

REACTIONS (9)
  - Congenital aortic valve incompetence [Unknown]
  - Cardiac murmur [Unknown]
  - Patent ductus arteriosus [Unknown]
  - Laryngomalacia [Unknown]
  - Congenital hydronephrosis [Unknown]
  - Bicuspid aortic valve [Unknown]
  - Congenital aortic stenosis [Unknown]
  - Atrial septal defect [Recovered/Resolved]
  - Foetal exposure during pregnancy [Unknown]
